FAERS Safety Report 7449778-3 (Version None)
Quarter: 2011Q2

REPORT INFORMATION
  Report Type: 
  Country: None (occurrence: None)
  Receive Date: 20110421
  Receipt Date: 20110406
  Transmission Date: 20111010
  Serious: Yes (Other)
  Sender: FDA-Public Use
  Company Number: AUR-APL-2011-01086

PATIENT
  Age: 61 Year
  Sex: Male

DRUGS (2)
  1. GENTAMICIN [Suspect]
     Indication: WOUND INFECTION
     Dosage: INTRAPERITONEAL
     Route: 033
  2. CEFAZOLIN [Suspect]
     Indication: WOUND INFECTION
     Dosage: INTRAPERITONEAL
     Route: 033
     Dates: start: 20000101

REACTIONS (4)
  - PURULENCE [None]
  - ERYTHEMA [None]
  - ANTIBIOTIC RESISTANT STAPHYLOCOCCUS TEST POSITIVE [None]
  - CULTURE WOUND POSITIVE [None]
